FAERS Safety Report 6003081-7 (Version None)
Quarter: 2008Q4

REPORT INFORMATION
  Report Type: 
  Country: None (occurrence: None)
  Receive Date: 20081212
  Receipt Date: 20081212
  Transmission Date: 20090506
  Serious: No
  Sender: FDA-Public Use
  Company Number: None

PATIENT
  Sex: Female
  Weight: 119.9311 kg

DRUGS (1)
  1. SERTRALINE [Suspect]
     Indication: DEPRESSION
     Dosage: 100MG TW0 TABS PO QD PO
     Route: 048
     Dates: start: 20070101

REACTIONS (2)
  - DYSPEPSIA [None]
  - DYSPHAGIA [None]
